FAERS Safety Report 14894278 (Version 3)
Quarter: 2020Q4

REPORT INFORMATION
  Report Type: Spontaneous
  Country: GB (occurrence: GB)
  Receive Date: 20180515
  Receipt Date: 20201103
  Transmission Date: 20210113
  Serious: Yes (Disabling, Other)
  Sender: FDA-Public Use
  Company Number: GB-BRISTOL-MYERS SQUIBB COMPANY-BMS-2018-043938

PATIENT
  Age: 52 Year
  Sex: Male

DRUGS (1)
  1. ENTECAVIR. [Suspect]
     Active Substance: ENTECAVIR
     Indication: ACUTE HEPATITIS B
     Dosage: 0.5 MG, QD
     Route: 048
     Dates: start: 201707, end: 201708

REACTIONS (6)
  - Visual field defect [Recovered/Resolved]
  - Retinal toxicity [Recovered/Resolved]
  - Retinal depigmentation [Recovered/Resolved]
  - Blindness unilateral [Recovered/Resolved]
  - Optic disc hyperaemia [Recovered/Resolved]
  - Toxicity to various agents [Recovered/Resolved]

NARRATIVE: CASE EVENT DATE: 20170818
